FAERS Safety Report 14898208 (Version 2)
Quarter: 2018Q2

REPORT INFORMATION
  Report Type: Spontaneous
  Country: US (occurrence: US)
  Receive Date: 20180515
  Receipt Date: 20180517
  Transmission Date: 20180711
  Serious: No
  Sender: FDA-Public Use
  Company Number: US-SA-2017SA269313

PATIENT
  Sex: Female

DRUGS (8)
  1. SOLOSTAR [Concomitant]
     Active Substance: DEVICE
  2. TRESIBA [Concomitant]
     Active Substance: INSULIN DEGLUDEC
  3. TOUJEO [Suspect]
     Active Substance: INSULIN GLARGINE
     Dosage: DOSE:39 UNIT(S)
     Route: 051
  4. TOUJEO [Suspect]
     Active Substance: INSULIN GLARGINE
     Dosage: DOSE:39 UNIT(S)
     Route: 051
  5. SOLOSTAR [Suspect]
     Active Substance: DEVICE
  6. NOVOLOG [Concomitant]
     Active Substance: INSULIN ASPART
  7. SOLOSTAR [Suspect]
     Active Substance: DEVICE
  8. LANTUS SOLOSTAR [Concomitant]
     Active Substance: INSULIN GLARGINE
     Route: 065

REACTIONS (3)
  - Extra dose administered [Unknown]
  - Blood glucose decreased [Unknown]
  - Blood glucose increased [Unknown]

NARRATIVE: CASE EVENT DATE: 20171226
